FAERS Safety Report 12318376 (Version 1)
Quarter: 2016Q2

REPORT INFORMATION
  Report Type: Spontaneous
  Country: US (occurrence: None)
  Receive Date: 20160428
  Receipt Date: 20160428
  Transmission Date: 20160815
  Serious: No
  Sender: FDA-Public Use
  Company Number: None

PATIENT
  Sex: Female

DRUGS (1)
  1. HUMIRA [Suspect]
     Active Substance: ADALIMUMAB
     Indication: HIDRADENITIS
     Dosage: 40 MG (0.8ML)
     Route: 058
     Dates: start: 20160303

REACTIONS (4)
  - Headache [None]
  - Dyspnoea [None]
  - Chest pain [None]
  - Night sweats [None]
